FAERS Safety Report 20595844 (Version 1)
Quarter: 2022Q1

REPORT INFORMATION
  Report Type: Spontaneous
  Country: FR (occurrence: FR)
  Receive Date: 20220315
  Receipt Date: 20220315
  Transmission Date: 20220423
  Serious: Yes (Hospitalization)
  Sender: FDA-Public Use
  Company Number: None

PATIENT
  Age: 53 Year
  Sex: Female
  Weight: 124 kg

DRUGS (2)
  1. SOLU-MEDROL [Suspect]
     Active Substance: METHYLPREDNISOLONE SODIUM SUCCINATE
     Indication: Endocrine ophthalmopathy
     Dosage: UNK
     Route: 041
     Dates: start: 20220104, end: 20220210
  2. COMIRNATY [Concomitant]
     Active Substance: TOZINAMERAN
     Indication: COVID-19 immunisation
     Dosage: DOSE 3 (BOOSTER), 1 DF SINGLE
     Route: 030
     Dates: start: 20211217, end: 20211217

REACTIONS (1)
  - Pulmonary embolism [Not Recovered/Not Resolved]

NARRATIVE: CASE EVENT DATE: 20220216
